FAERS Safety Report 7114287-8 (Version None)
Quarter: 2010Q4

REPORT INFORMATION
  Report Type: 
  Country: None (occurrence: None)
  Receive Date: 20101119
  Receipt Date: 20101112
  Transmission Date: 20110411
  Serious: Yes (Other)
  Sender: FDA-Public Use
  Company Number: CHPA2010US17642

PATIENT
  Age: 66 Year
  Sex: Female
  Weight: 90.703 kg

DRUGS (1)
  1. GAS-X EXTRA STRENGTH (NCH) [Suspect]
     Indication: FLATULENCE
     Dosage: 125 MG, QD
     Route: 048
     Dates: start: 20101022, end: 20101104

REACTIONS (1)
  - OEDEMA PERIPHERAL [None]
